FAERS Safety Report 10060372 (Version 1)
Quarter: 2014Q2

REPORT INFORMATION
  Report Type: Spontaneous
  Country: US (occurrence: US)
  Receive Date: 20140404
  Receipt Date: 20140404
  Transmission Date: 20141212
  Serious: Yes (Death, Other)
  Sender: FDA-Public Use
  Company Number: US-BAXTER-2014BAX015977

PATIENT
  Age: 77 Year
  Sex: 0

DRUGS (9)
  1. VANCOMYCIN INJECTION, USP [Suspect]
     Indication: CHOLECYSTITIS
     Route: 042
  2. VANCOMYCIN INJECTION, USP [Suspect]
     Indication: ALVEOLAR LUNG DISEASE
  3. TIGECYCLINE [Suspect]
     Indication: CHOLECYSTITIS
     Route: 065
  4. TIGECYCLINE [Suspect]
     Indication: ALVEOLAR LUNG DISEASE
  5. AMIKACIN [Suspect]
     Indication: CHOLECYSTITIS
     Route: 065
  6. AMIKACIN [Suspect]
     Indication: ALVEOLAR LUNG DISEASE
  7. IMIPENEM [Suspect]
     Indication: CHOLECYSTITIS
     Route: 042
  8. IMIPENEM [Suspect]
     Indication: ALVEOLAR LUNG DISEASE
  9. COLISTIN [Suspect]
     Indication: PNEUMONIA ASPIRATION
     Route: 065

REACTIONS (5)
  - Treatment failure [Unknown]
  - Klebsiella infection [Unknown]
  - Splenic infarction [Unknown]
  - Abscess [Unknown]
  - Bacteraemia [Fatal]
